FAERS Safety Report 6155234-5 (Version None)
Quarter: 2009Q2

REPORT INFORMATION
  Report Type: 
  Country: None (occurrence: None)
  Receive Date: 20090415
  Receipt Date: 20090407
  Transmission Date: 20091009
  Serious: Yes (Other)
  Sender: FDA-Public Use
  Company Number: PHHY2009GB13308

PATIENT
  Age: 44 Year
  Sex: Male
  Weight: 90 kg

DRUGS (1)
  1. TERBINAFINE HCL [Suspect]
     Indication: FUNGAL INFECTION
     Dosage: 200 MG, UNK
     Route: 048
     Dates: start: 20080801

REACTIONS (4)
  - DEPRESSION [None]
  - FATIGUE [None]
  - MENTAL DISORDER [None]
  - PARANOIA [None]
